FAERS Safety Report 10029846 (Version 2)
Quarter: 2014Q2

REPORT INFORMATION
  Report Type: Report from Study
  Country: US (occurrence: None)
  Receive Date: 20140320
  Receipt Date: 20140401
  Transmission Date: 20141212
  Serious: Yes (Other)
  Sender: FDA-Public Use
  Company Number: 2014SGN00202

PATIENT
  Age: 16 Year
  Sex: Female

DRUGS (10)
  1. BRENTUXIMAB VEDOTIN [Suspect]
     Indication: HODGKIN^S DISEASE
     Dosage: 1.2 MG/KG, QCYCLE, IV
     Route: 042
     Dates: start: 20140227, end: 20140227
  2. ETOPOSIDE [Suspect]
     Indication: HODGKIN^S DISEASE
     Dosage: 125 MG/M2, QCYCLE, IV
     Route: 042
     Dates: start: 20140227, end: 20140227
  3. PREDNISONE [Suspect]
     Indication: HODGKIN^S DISEASE
  4. DOXORUBICIN (DOXORUBICIN) INJECTION [Suspect]
     Indication: HODGKIN^S DISEASE
  5. CYCLOPHOSPHAMIDE [Suspect]
     Indication: HODGKIN^S DISEASE
  6. DACARBAZINE (DACARBAZINE) INJECTION [Suspect]
     Indication: HODGKIN^S DISEASE
  7. ONDANSETRON (ONDANSETRON) [Concomitant]
  8. SEPTRA [Concomitant]
  9. RANITIDINE (RANITIDINE) [Concomitant]
  10. MULTIVITAMINS (ASCORBIC ACID, ERGOCALCIFEROL, FOLIC ACID, NICOTINAMIDE, PANTHENOL, RETINOL, RIBOFLAVIN, THIAMINE HYDROCHLORIDE) [Concomitant]

REACTIONS (4)
  - Cyanosis [None]
  - Pallor [None]
  - Hyperhidrosis [None]
  - Cough [None]
